FAERS Safety Report 8435970-8 (Version None)
Quarter: 2012Q2

REPORT INFORMATION
  Report Type: 
  Country: None (occurrence: None)
  Receive Date: 20120614
  Receipt Date: 20120608
  Transmission Date: 20120825
  Serious: No
  Sender: FDA-Public Use
  Company Number: US-PFIZER INC-2012138426

PATIENT
  Age: 60 Year
  Sex: Male

DRUGS (1)
  1. XALKORI [Suspect]
     Dosage: 250 MG, 2X/DAY

REACTIONS (4)
  - CONSTIPATION [None]
  - FATIGUE [None]
  - NAUSEA [None]
  - VOMITING [None]
